FAERS Safety Report 26047577 (Version 1)
Quarter: 2025Q4

REPORT INFORMATION
  Report Type: Spontaneous
  Country: US (occurrence: US)
  Receive Date: 20251114
  Receipt Date: 20251114
  Transmission Date: 20260118
  Serious: Yes (Other)
  Sender: NOVO NORDISK
  Company Number: US-NOVOPROD-1562352

PATIENT
  Age: 76 Year
  Sex: Female

DRUGS (4)
  1. NOVOLIN N [Suspect]
     Active Substance: INSULIN HUMAN
     Indication: Type 2 diabetes mellitus
     Dosage: 18 IU, TID
     Route: 058
     Dates: start: 2006
  2. NOVOLIN N [Suspect]
     Active Substance: INSULIN HUMAN
     Dosage: 20 IU, TID
     Route: 058
     Dates: start: 2006
  3. NOVOLIN R [Suspect]
     Active Substance: INSULIN HUMAN
     Indication: Type 2 diabetes mellitus
     Dosage: 18 IU, TID
     Route: 058
     Dates: start: 2006
  4. NOVOLIN R [Suspect]
     Active Substance: INSULIN HUMAN
     Dosage: 20 IU, TID
     Route: 058
     Dates: start: 2006

REACTIONS (1)
  - Cataract [Not Recovered/Not Resolved]
